FAERS Safety Report 24895044 (Version 1)
Quarter: 2025Q1

REPORT INFORMATION
  Report Type: Spontaneous
  Country: CN (occurrence: CN)
  Receive Date: 20250128
  Receipt Date: 20250128
  Transmission Date: 20250409
  Serious: Yes (Hospitalization)
  Sender: SANDOZ
  Company Number: CN-002147023-NVSC2024CN232398

PATIENT
  Age: 42 Year
  Sex: Female
  Weight: 67.2 kg

DRUGS (6)
  1. LORLATINIB [Suspect]
     Active Substance: LORLATINIB
     Indication: Non-small cell lung cancer
     Dosage: 100 MG, QD
     Route: 048
     Dates: start: 20241008, end: 20241018
  2. MEROPENEM [Suspect]
     Active Substance: MEROPENEM
     Indication: Product used for unknown indication
     Route: 065
  3. MOXIFLOXACIN [Suspect]
     Active Substance: MOXIFLOXACIN
     Indication: Product used for unknown indication
     Route: 065
  4. MYCOPHENOLATE MOFETIL [Suspect]
     Active Substance: MYCOPHENOLATE MOFETIL
     Indication: Product used for unknown indication
     Route: 065
  5. NINTEDANIB [Suspect]
     Active Substance: NINTEDANIB
     Indication: Product used for unknown indication
     Route: 065
  6. VANCOMYCIN [Suspect]
     Active Substance: VANCOMYCIN
     Indication: Product used for unknown indication
     Route: 065

REACTIONS (10)
  - Toxic epidermal necrolysis [Not Recovered/Not Resolved]
  - Dry skin [Unknown]
  - Drug eruption [Unknown]
  - Blister [Unknown]
  - Oral mucosa erosion [Unknown]
  - Lip scab [Unknown]
  - Skin erosion [Unknown]
  - Skin exfoliation [Unknown]
  - Erythema [Unknown]
  - Rash [Unknown]

NARRATIVE: CASE EVENT DATE: 20241014
